FAERS Safety Report 5074095-9 (Version None)
Quarter: 2006Q3

REPORT INFORMATION
  Report Type: 
  Country: None (occurrence: None)
  Receive Date: 20060808
  Receipt Date: 20060628
  Transmission Date: 20061208
  Serious: Yes (Hospitalization)
  Sender: FDA-Public Use
  Company Number: JP-SANOFI-SYNTHELABO-A01200605171

PATIENT
  Sex: Female
  Weight: 47 kg

DRUGS (8)
  1. HALOPERIDOL [Concomitant]
     Route: 042
     Dates: start: 20060215, end: 20060219
  2. AZASETRON HYDROCHLORIDE [Concomitant]
     Route: 042
     Dates: start: 20060215, end: 20060219
  3. METOCLOPRAMIDE [Concomitant]
     Route: 042
     Dates: start: 20060215, end: 20060219
  4. FLUOROURACIL [Suspect]
     Dosage: 330MG/BODY=237.4MG/M2 IN BOLUS, THEN 2000MG/BODY=1438.8MG/M2 AS INFUSION.
     Route: 042
     Dates: start: 20060215, end: 20060216
  5. CALCIUM LEVOFOLINATE [Suspect]
     Dosage: 160MG/BODY=115.1MG/M2
     Route: 042
     Dates: start: 20060215, end: 20060215
  6. DEXAMETHASONE [Concomitant]
     Route: 040
     Dates: start: 20060215, end: 20060219
  7. ONDANSETRON HCL [Concomitant]
     Route: 042
     Dates: start: 20060215, end: 20060607
  8. OXALIPLATIN [Suspect]
     Indication: LARGE INTESTINE CARCINOMA
     Dosage: 70MG/BODY=50.4MG/M2
     Route: 042
     Dates: start: 20060215, end: 20060215

REACTIONS (1)
  - RENAL IMPAIRMENT [None]
